FAERS Safety Report 17752693 (Version 6)
Quarter: 2020Q2

REPORT INFORMATION
  Report Type: Spontaneous
  Country: CA (occurrence: CA)
  Receive Date: 20200506
  Receipt Date: 20200602
  Transmission Date: 20200714
  Serious: Yes (Hospitalization, Other)
  Sender: FDA-Public Use
  Company Number: CA-PFIZER INC-2019084328

PATIENT
  Age: 71 Year
  Sex: Male

DRUGS (4)
  1. MEZAVANT [Concomitant]
     Active Substance: MESALAMINE
     Dosage: 2 DF, 1X/DAY ((AM, MORNING)
     Route: 048
  2. SERTRALINE [Concomitant]
     Active Substance: SERTRALINE HYDROCHLORIDE
     Dosage: 25 MG (TO BE INCREASE TO 50MG)
     Dates: start: 202004, end: 2020
  3. XELJANZ [Suspect]
     Active Substance: TOFACITINIB CITRATE
     Indication: COLITIS ULCERATIVE
     Dosage: 10 MG, 2X/DAY
     Route: 048
     Dates: start: 20190117, end: 20200528
  4. AZATHIOPRINE. [Concomitant]
     Active Substance: AZATHIOPRINE
     Dosage: 3 DF, 1X/DAY (THREE TABLETS)
     Route: 048

REACTIONS (11)
  - Faeces soft [Unknown]
  - Asthenia [Unknown]
  - Lymphoma [Not Recovered/Not Resolved]
  - Fatigue [Unknown]
  - Product dose omission [Unknown]
  - Neoplasm malignant [Unknown]
  - Stress [Unknown]
  - Decreased appetite [Unknown]
  - Cardiac disorder [Unknown]
  - Transcription medication error [Unknown]
  - Lung disorder [Unknown]
